FAERS Safety Report 7980883-9 (Version None)
Quarter: 2011Q4

REPORT INFORMATION
  Report Type: 
  Country: None (occurrence: None)
  Receive Date: 20111214
  Receipt Date: 20111201
  Transmission Date: 20120403
  Serious: Yes (Other)
  Sender: FDA-Public Use
  Company Number: US-MYLANLABS-2011S1025141

PATIENT
  Age: 69 Year
  Sex: Male

DRUGS (14)
  1. BISOPROLOL FUMARATE [Concomitant]
     Dosage: 10MG DAILY
     Route: 065
  2. BREVA [Concomitant]
     Dosage: INHALER; AS NEEDED
     Route: 055
  3. LISINOPRIL [Concomitant]
     Route: 065
  4. LEVOSALBUTAMOL [Concomitant]
     Indication: RESPIRATORY DISTRESS
     Dosage: AS NEEDED
     Route: 055
  5. FUROSEMIDE [Concomitant]
     Indication: CARDIAC FAILURE
     Dosage: 40MG DAILY
     Route: 042
  6. PREDNISONE TAB [Concomitant]
     Indication: CHRONIC OBSTRUCTIVE PULMONARY DISEASE
     Dosage: 5-DAY COURSE
     Route: 048
  7. CARVEDILOL [Suspect]
     Dosage: 25MG IN THE MORNING, 50MG IN THE EVENING
     Route: 065
  8. BISOPROLOL FUMARATE [Suspect]
  9. FUROSEMIDE [Concomitant]
     Dosage: HOME DOSE 40MG DAILY
     Route: 048
  10. EPLERENONE [Concomitant]
     Route: 065
  11. WARFARIN SODIUM [Concomitant]
     Route: 065
  12. AZITHROMYCIN [Concomitant]
     Indication: CHRONIC OBSTRUCTIVE PULMONARY DISEASE
     Dosage: 5-DAY COURSE
     Route: 065
  13. ATORVASTATIN [Concomitant]
     Route: 065
  14. LEVOTHYROXINE SODIUM [Concomitant]
     Route: 065

REACTIONS (3)
  - THERAPEUTIC RESPONSE UNEXPECTED [None]
  - WHEEZING [None]
  - URINARY RETENTION [None]
